FAERS Safety Report 8583020 (Version 8)
Quarter: 2020Q3

REPORT INFORMATION
  Report Type: Spontaneous
  Country: GB (occurrence: GB)
  Receive Date: 20120529
  Receipt Date: 20200930
  Transmission Date: 20201103
  Serious: Yes (Death, Hospitalization, Other)
  Sender: FDA-Public Use
  Company Number: PHHY2012GB044934

PATIENT
  Age: 40 Year
  Sex: Male
  Weight: 104 kg

DRUGS (27)
  1. CLARITHROMYCIN. [Interacting]
     Active Substance: CLARITHROMYCIN
     Indication: PHARYNGITIS
     Dosage: 1000 MG, QD
     Route: 048
     Dates: start: 20111028
  2. METHADONE [Interacting]
     Active Substance: METHADONE HYDROCHLORIDE
     Indication: CROHN^S DISEASE
     Dosage: 35 MG, BID
     Route: 048
     Dates: start: 20111025
  3. ADCAL?D3 [Concomitant]
     Active Substance: CALCIUM CARBONATE\CHOLECALCIFEROL
     Indication: BONE DISORDER
  4. ORAMORPH [Concomitant]
     Active Substance: MORPHINE SULFATE
     Indication: CROHN^S DISEASE
     Dosage: 100 MG, QD
     Route: 048
     Dates: start: 20110707, end: 20111025
  5. MST CONTINUS [Concomitant]
     Active Substance: MORPHINE SULFATE
     Indication: PAIN
     Dosage: 20 MG, QD
     Route: 048
     Dates: end: 20110818
  6. NUTRITION SUPPLEMENTS [Concomitant]
     Active Substance: DIETARY SUPPLEMENT
     Indication: NUTRITIONAL SUPPLEMENTATION
     Dosage: 1 DF, UNK
     Route: 048
     Dates: start: 20110105
  7. PARACETAMOL [Concomitant]
     Active Substance: ACETAMINOPHEN
     Indication: PAIN
     Dosage: 1 G, UNK
     Route: 065
  8. METHADONE [Interacting]
     Active Substance: METHADONE HYDROCHLORIDE
     Dosage: 80 ML, QD
     Route: 048
     Dates: start: 20111027
  9. ADCAL?D3 [Concomitant]
     Active Substance: CALCIUM CARBONATE\CHOLECALCIFEROL
     Indication: CROHN^S DISEASE
     Dosage: 1 DF, BID (CONTINUED)
     Route: 048
     Dates: start: 20110808
  10. MULTIVITAMINS [Concomitant]
     Active Substance: VITAMINS
     Indication: PRODUCT USED FOR UNKNOWN INDICATION
     Dosage: UNK
     Route: 065
  11. ASCORBIC ACID. [Concomitant]
     Active Substance: ASCORBIC ACID
     Indication: PRODUCT USED FOR UNKNOWN INDICATION
     Route: 065
     Dates: start: 20111006
  12. CLARITHROMYCIN. [Suspect]
     Active Substance: CLARITHROMYCIN
     Indication: LOWER RESPIRATORY TRACT INFECTION
     Dosage: 500 MG, BID
     Route: 048
     Dates: start: 20111025
  13. METHADONE [Interacting]
     Active Substance: METHADONE HYDROCHLORIDE
     Indication: ABDOMINAL PAIN
     Dosage: 45 MG, BID
     Route: 048
  14. METHADONE [Interacting]
     Active Substance: METHADONE HYDROCHLORIDE
     Dosage: 70 ML, QD
     Route: 048
     Dates: start: 20111028, end: 20111030
  15. DIAZEPAM. [Concomitant]
     Active Substance: DIAZEPAM
     Indication: ANXIETY
     Dosage: 2 MG
     Route: 048
     Dates: start: 20111019
  16. DIAZEPAM. [Concomitant]
     Active Substance: DIAZEPAM
     Dosage: UNK
     Route: 065
     Dates: start: 20111010
  17. LANSOPRAZOLE. [Concomitant]
     Active Substance: LANSOPRAZOLE
     Indication: DYSPEPSIA
     Dosage: 30 MG, QD
     Route: 065
  18. VENTOLIN [Concomitant]
     Active Substance: ALBUTEROL SULFATE
     Indication: PRODUCT USED FOR UNKNOWN INDICATION
     Dosage: 100 UG
     Route: 065
  19. VENTOLIN [Concomitant]
     Active Substance: ALBUTEROL SULFATE
     Dosage: UNK
     Route: 065
  20. ORAMORPH [Concomitant]
     Active Substance: MORPHINE SULFATE
     Indication: PAIN
     Dosage: 100 MG, QD
     Route: 048
     Dates: start: 201102, end: 20111025
  21. HYDROXOCOBALAMIN [Concomitant]
     Active Substance: HYDROXOCOBALAMIN
     Indication: VITAMIN D DEFICIENCY
     Dosage: 1 DF, UNK
     Route: 065
     Dates: end: 20110823
  22. HUMIRA [Concomitant]
     Active Substance: ADALIMUMAB
     Indication: CROHN^S DISEASE
     Dosage: 160 MG, BIW
     Route: 058
     Dates: start: 20111005
  23. HUMIRA [Concomitant]
     Active Substance: ADALIMUMAB
     Dosage: 80 MG, BIW
     Route: 058
     Dates: start: 20111027
  24. LANSOPRAZOLE. [Concomitant]
     Active Substance: LANSOPRAZOLE
     Indication: GASTRITIS
     Dosage: 30 MG, QD
     Route: 048
     Dates: start: 20111019
  25. METHADONE [Interacting]
     Active Substance: METHADONE HYDROCHLORIDE
     Dosage: 90 ML, QD
     Route: 048
     Dates: start: 20111025
  26. HUMIRA [Concomitant]
     Active Substance: ADALIMUMAB
     Dosage: 40 MG, QW (CONTINUED)
     Route: 030
     Dates: start: 20111005
  27. LANSOPRAZOLE. [Concomitant]
     Active Substance: LANSOPRAZOLE
     Dosage: UNK
     Route: 065
     Dates: start: 20070219

REACTIONS (40)
  - Toxicity to various agents [Fatal]
  - Somnolence [Fatal]
  - Vision blurred [Fatal]
  - Diplopia [Fatal]
  - Malaise [Unknown]
  - Headache [Unknown]
  - Chest pain [Fatal]
  - Heart rate increased [Fatal]
  - Inflammatory marker increased [Unknown]
  - Blood urine [Unknown]
  - Hepatic steatosis [Unknown]
  - Tremor [Fatal]
  - Hiccups [Unknown]
  - Pharyngeal erythema [Unknown]
  - Erythema [Unknown]
  - Hepatomegaly [Unknown]
  - Dizziness [Unknown]
  - Influenza [Unknown]
  - Confusional state [Fatal]
  - Aggression [Fatal]
  - White blood cell count decreased [Unknown]
  - C-reactive protein increased [Unknown]
  - Splenomegaly [Unknown]
  - Diffuse alveolar damage [Fatal]
  - Pulmonary congestion [Fatal]
  - Pulmonary oedema [Fatal]
  - Hyperhidrosis [Fatal]
  - Dysarthria [Fatal]
  - Rectal haemorrhage [Unknown]
  - Dysuria [Unknown]
  - Inhibitory drug interaction [Not Recovered/Not Resolved]
  - Crohn^s disease [Unknown]
  - Oropharyngeal pain [Unknown]
  - Pyrexia [Unknown]
  - Infection [Unknown]
  - Vomiting [Unknown]
  - Cardiac hypertrophy [Unknown]
  - Immunosuppression [Unknown]
  - Pneumonitis [Unknown]
  - Pain [Unknown]

NARRATIVE: CASE EVENT DATE: 201110
